FAERS Safety Report 14651915 (Version 1)
Quarter: 2018Q1

REPORT INFORMATION
  Report Type: Spontaneous
  Country: US (occurrence: US)
  Receive Date: 20180317
  Receipt Date: 20180317
  Transmission Date: 20180509
  Serious: No
  Sender: FDA-Public Use
  Company Number: US-JNJFOC-20180307592

PATIENT
  Age: 62 Year
  Sex: Female

DRUGS (5)
  1. CEFZIL [Concomitant]
     Active Substance: CEFPROZIL
     Route: 065
     Dates: start: 20100125
  2. LEVAQUIN [Suspect]
     Active Substance: LEVOFLOXACIN
     Indication: PRODUCT USED FOR UNKNOWN INDICATION
     Route: 065
     Dates: start: 20100125
  3. ERYTHROMYCIN. [Concomitant]
     Active Substance: ERYTHROMYCIN
     Route: 065
     Dates: start: 20100125
  4. AVIDOXY [Concomitant]
     Route: 065
     Dates: start: 20100125
  5. CODEINE [Concomitant]
     Active Substance: CODEINE
     Route: 065
     Dates: start: 20100125

REACTIONS (1)
  - Drug hypersensitivity [Unknown]

NARRATIVE: CASE EVENT DATE: 201001
